FAERS Safety Report 18359287 (Version 1)
Quarter: 2020Q4

REPORT INFORMATION
  Report Type: Spontaneous
  Country: US (occurrence: US)
  Receive Date: 20201007
  Receipt Date: 20201007
  Transmission Date: 20210114
  Serious: No
  Sender: FDA-Public Use
  Company Number: None

PATIENT
  Age: 55 Year
  Sex: Male
  Weight: 117.9 kg

DRUGS (7)
  1. PREDNISONE 2.5MG [Concomitant]
     Active Substance: PREDNISONE
  2. BOSULIF [Suspect]
     Active Substance: BOSUTINIB MONOHYDRATE
     Indication: CHRONIC MYELOID LEUKAEMIA
     Route: 048
     Dates: start: 20200914
  3. ALLOPURINOL 100MG [Concomitant]
     Active Substance: ALLOPURINOL
  4. OMEPRAZOLE 20MG [Concomitant]
     Active Substance: OMEPRAZOLE
  5. CLARITHROMYCIN 250MG [Concomitant]
     Active Substance: CLARITHROMYCIN
  6. SINGULAIR [Concomitant]
     Active Substance: MONTELUKAST SODIUM
  7. INDOMETHACIN 25MG [Concomitant]

REACTIONS (2)
  - Fatigue [None]
  - Somnolence [None]

NARRATIVE: CASE EVENT DATE: 20200916
